FAERS Safety Report 21481082 (Version 1)
Quarter: 2022Q4

REPORT INFORMATION
  Report Type: Report from Study
  Country: US (occurrence: US)
  Receive Date: 20221019
  Receipt Date: 20221019
  Transmission Date: 20230112
  Serious: No
  Sender: FDA-Public Use
  Company Number: US-ABBVIE-4165109

PATIENT
  Sex: Male

DRUGS (4)
  1. SKYRIZI [Suspect]
     Active Substance: RISANKIZUMAB-RZAA
     Indication: Psoriasis
     Route: 058
  2. Moderna [Concomitant]
     Indication: COVID-19 immunisation
     Dosage: FREQUENCY: 1 IN ONCE; FIRST DOSE
     Route: 030
     Dates: start: 20220302, end: 20210302
  3. Moderna [Concomitant]
     Indication: COVID-19 immunisation
     Dosage: FREQUENCY: 1 IN ONCE; SECONDDOSE
     Route: 030
     Dates: start: 20210405, end: 20210405
  4. Moderna [Concomitant]
     Indication: COVID-19 immunisation
     Dosage: FREQUENCY: 1 IN ONCE; BOOSTER DOSE
     Route: 030
     Dates: start: 20211002, end: 20211002

REACTIONS (4)
  - Skin exfoliation [Recovering/Resolving]
  - Pruritus [Not Recovered/Not Resolved]
  - Erythema [Not Recovered/Not Resolved]
  - Therapeutic response shortened [Unknown]
